FAERS Safety Report 5947819-3 (Version None)
Quarter: 2008Q4

REPORT INFORMATION
  Report Type: 
  Country: None (occurrence: None)
  Receive Date: 20081107
  Receipt Date: 20081019
  Transmission Date: 20090506
  Serious: Yes (Other)
  Sender: FDA-Public Use
  Company Number: 20467

PATIENT
  Age: 47 Year
  Sex: Male

DRUGS (6)
  1. PACLITAXEL [Suspect]
     Indication: LUNG NEOPLASM MALIGNANT
     Dates: start: 20080519, end: 20080611
  2. BEVACIZUMAB [Concomitant]
  3. DEXAMETHASONE 0.5MG TAB [Concomitant]
  4. GRANISETRON HCL [Concomitant]
  5. DEXCHLORPHENIRAMINE MALEATE [Concomitant]
  6. RANITDINE HYDROCHLORIDE [Concomitant]

REACTIONS (4)
  - CONVULSION [None]
  - HYPERHIDROSIS [None]
  - HYPOTENSION [None]
  - LOSS OF CONSCIOUSNESS [None]
